FAERS Safety Report 4861438-1 (Version None)
Quarter: 2005Q4

REPORT INFORMATION
  Report Type: 
  Country: None (occurrence: None)
  Receive Date: 20051220
  Receipt Date: 20051213
  Transmission Date: 20060501
  Serious: Yes (Hospitalization)
  Sender: FDA-Public Use
  Company Number: US-JNJFOC-20051203471

PATIENT
  Sex: Female

DRUGS (2)
  1. DURAGESIC-100 [Suspect]
     Route: 062
     Dates: start: 20050601
  2. DURAGESIC-100 [Suspect]
     Route: 062
     Dates: start: 20050601

REACTIONS (2)
  - DRUG WITHDRAWAL SYNDROME [None]
  - PNEUMONIA [None]
